FAERS Safety Report 8799537 (Version 1)
Quarter: 2012Q4

REPORT INFORMATION
  Report Type: 
  Country: US (occurrence: US)
  Receive Date: 20120919
  Receipt Date: 20120919
  Transmission Date: 20130627
  Serious: No
  Sender: FDA-Public Use
  Company Number: US-PFIZER INC-2011045842

PATIENT
  Age: 71 Year
  Sex: Male
  Weight: 98 kg

DRUGS (2)
  1. SUTENT [Suspect]
     Indication: NEUROENDOCRINE TUMOUR
     Dosage: 37.5 mg, daily (3 capsules of 12.5)
     Route: 048
  2. SUTENT [Suspect]
     Dosage: UNK

REACTIONS (7)
  - Skin lesion [Not Recovered/Not Resolved]
  - Gait disturbance [Unknown]
  - Pain in extremity [Unknown]
  - Blister [Unknown]
  - Hyperkeratosis [Unknown]
  - Diarrhoea [Unknown]
  - Pain [Unknown]
